FAERS Safety Report 12811116 (Version 1)
Quarter: 2016Q4

REPORT INFORMATION
  Report Type: Spontaneous
  Country: US (occurrence: US)
  Receive Date: 20161004
  Receipt Date: 20161004
  Transmission Date: 20170207
  Serious: Yes (Disabling)
  Sender: FDA-Public Use
  Company Number: None

PATIENT
  Age: 60 Year
  Sex: Male
  Weight: 91.8 kg

DRUGS (1)
  1. ROSUVASTATIN 20 MG TAB, 20 MG ACTAVIS/ARROW PHARM [Suspect]
     Active Substance: ROSUVASTATIN
     Indication: BLOOD CHOLESTEROL INCREASED
     Dosage: ?          QUANTITY:1 TABLET(S);?
     Route: 048
     Dates: start: 20160922, end: 20161004

REACTIONS (1)
  - Gout [None]

NARRATIVE: CASE EVENT DATE: 20161001
